FAERS Safety Report 23724110 (Version 2)
Quarter: 2024Q2

REPORT INFORMATION
  Report Type: Spontaneous
  Country: BR (occurrence: None)
  Receive Date: 20240409
  Receipt Date: 20240410
  Transmission Date: 20240716
  Serious: Yes (Other)
  Sender: FDA-Public Use
  Company Number: 2024A083318

PATIENT
  Age: 71 Year
  Sex: Female

DRUGS (10)
  1. XIGDUO XR [Suspect]
     Active Substance: DAPAGLIFLOZIN PROPANEDIOL\METFORMIN HYDROCHLORIDE
     Indication: Type 2 diabetes mellitus
     Dosage: ONCE
     Route: 048
  2. XIGDUO XR [Suspect]
     Active Substance: DAPAGLIFLOZIN PROPANEDIOL\METFORMIN HYDROCHLORIDE
     Indication: Cardiac disorder
     Dosage: ONCE
     Route: 048
  3. METOPROLOL SUCCINATE [Suspect]
     Active Substance: METOPROLOL SUCCINATE
     Indication: Blood pressure inadequately controlled
     Dosage: ONCE
     Route: 048
  4. METOPROLOL SUCCINATE [Suspect]
     Active Substance: METOPROLOL SUCCINATE
     Indication: Arrhythmia
     Dosage: ONCE
     Route: 048
  5. GLICLAZIDE [Concomitant]
     Active Substance: GLICLAZIDE
     Indication: Type 2 diabetes mellitus
  6. GLICLAZIDE [Concomitant]
     Active Substance: GLICLAZIDE
     Indication: Cardiac disorder
  7. OLMESARTAN [Concomitant]
     Active Substance: OLMESARTAN
     Indication: Hypotension
     Dosage: ONCE
  8. ASPIRIN [Concomitant]
     Active Substance: ASPIRIN
     Indication: Infarction
     Dosage: ONCE
  9. ATORVASTATIN [Concomitant]
     Active Substance: ATORVASTATIN
     Dosage: ONCE
  10. GINKGO [Concomitant]
     Active Substance: GINKGO
     Dosage: ONCE

REACTIONS (2)
  - Infarction [Unknown]
  - Product residue present [Unknown]
